FAERS Safety Report 12815588 (Version 2)
Quarter: 2016Q4

REPORT INFORMATION
  Report Type: Spontaneous
  Country: DK (occurrence: DK)
  Receive Date: 20161005
  Receipt Date: 20161007
  Transmission Date: 20170207
  Serious: Yes (Other)
  Sender: FDA-Public Use
  Company Number: DK-JNJFOC-20161001881

PATIENT
  Age: 28 Year
  Sex: Female
  Weight: 48 kg

DRUGS (1)
  1. CILEST [Suspect]
     Active Substance: ETHINYL ESTRADIOL\NORGESTIMATE
     Indication: CONTRACEPTION
     Dosage: 1 TABLET DAILY FOR 3 WEEKS THEREAFTER ONE WEEK PAUSE
     Route: 048
     Dates: start: 20150930, end: 201606

REACTIONS (3)
  - Cardiac ablation [Recovered/Resolved]
  - Palpitations [Recovering/Resolving]
  - Arrhythmia [Recovering/Resolving]

NARRATIVE: CASE EVENT DATE: 20151215
